FAERS Safety Report 13926621 (Version 1)
Quarter: 2017Q3

REPORT INFORMATION
  Report Type: Spontaneous
  Country: US (occurrence: None)
  Receive Date: 20170831
  Receipt Date: 20170831
  Transmission Date: 20171127
  Serious: Yes (Hospitalization)
  Sender: FDA-Public Use
  Company Number: None

PATIENT
  Age: 68 Year
  Sex: Male

DRUGS (1)
  1. OXYBUTYNIN [Suspect]
     Active Substance: OXYBUTYNIN
     Indication: ASTHENIA
     Dates: start: 20170525, end: 20170807

REACTIONS (2)
  - Asthenia [None]
  - Urinary retention [None]

NARRATIVE: CASE EVENT DATE: 20170710
